FAERS Safety Report 9374905 (Version 1)
Quarter: 2013Q2

REPORT INFORMATION
  Report Type: Spontaneous
  Country: BR (occurrence: BR)
  Receive Date: 20130628
  Receipt Date: 20130628
  Transmission Date: 20140414
  Serious: Yes (Other)
  Sender: FDA-Public Use
  Company Number: BR-PFIZER INC-2013189865

PATIENT
  Age: 78 Year
  Sex: Male

DRUGS (5)
  1. LIPITOR [Suspect]
     Indication: BLOOD CHOLESTEROL
     Dosage: 40 MG, UNK
     Dates: start: 20130610
  2. ATENOLOL [Concomitant]
  3. AAS [Concomitant]
  4. OMEPRAZOLE [Concomitant]
     Dosage: 4 MG, UNK
  5. DOXAZOSIN MESILATE [Concomitant]
     Indication: PROSTATIC DISORDER

REACTIONS (4)
  - Conjunctival haemorrhage [Unknown]
  - Haemorrhoids [Not Recovered/Not Resolved]
  - Flatulence [Not Recovered/Not Resolved]
  - Constipation [Unknown]
